FAERS Safety Report 14110023 (Version 1)
Quarter: 2017Q4

REPORT INFORMATION
  Report Type: Spontaneous
  Country: US (occurrence: US)
  Receive Date: 20171020
  Receipt Date: 20171020
  Transmission Date: 20180321
  Serious: No
  Sender: FDA-Public Use
  Company Number: US-TEVA-792037ACC

PATIENT
  Sex: Female

DRUGS (1)
  1. TRI-LO-SPRINTEC [Suspect]
     Active Substance: ETHINYL ESTRADIOL\NORGESTIMATE
     Indication: CONTRACEPTION
     Dosage: DOSE STRENGTH:  0.18/0.25; 0.215/0.035; 0.250/
     Dates: start: 2017

REACTIONS (2)
  - Malaise [Not Recovered/Not Resolved]
  - Eczema [Not Recovered/Not Resolved]
